FAERS Safety Report 9109129 (Version 1)
Quarter: 2013Q1

REPORT INFORMATION
  Report Type: Spontaneous
  Country: GR (occurrence: GR)
  Receive Date: 20130222
  Receipt Date: 20130222
  Transmission Date: 20140127
  Serious: Yes (Hospitalization, Other)
  Sender: FDA-Public Use
  Company Number: GR-GLAXOSMITHKLINE-B0868161A

PATIENT
  Age: 16 Year
  Sex: Female

DRUGS (7)
  1. ZANTAC [Suspect]
     Route: 065
  2. RANITIDINE [Suspect]
     Indication: PRODUCT USED FOR UNKNOWN INDICATION
     Route: 042
  3. BETALACTAM [Concomitant]
  4. ANAESTHETICS [Concomitant]
     Route: 065
  5. ANTIEMETICS [Concomitant]
  6. H2 RECEPTOR ANTAGONIST [Concomitant]
  7. CEFOXITIN [Concomitant]
     Route: 042

REACTIONS (10)
  - Anaphylactic reaction [Unknown]
  - Hypotension [Unknown]
  - Bronchospasm [Unknown]
  - Angioedema [Unknown]
  - Urticaria [Unknown]
  - Dizziness [Unknown]
  - Bone pain [Unknown]
  - Headache [Unknown]
  - Histamine level increased [Unknown]
  - Tryptase increased [Unknown]
